FAERS Safety Report 7359708-0 (Version None)
Quarter: 2011Q1

REPORT INFORMATION
  Report Type: 
  Country: None (occurrence: None)
  Receive Date: 20110317
  Receipt Date: 20100608
  Transmission Date: 20110831
  Serious: No
  Sender: FDA-Public Use
  Company Number: CA-PFIZER INC-2010072086

PATIENT
  Age: 44 Year
  Sex: Male

DRUGS (2)
  1. NORVASC [Suspect]
     Indication: HYPERTENSION
     Dosage: 10 MG, 1X/DAY
     Dates: start: 20070101
  2. ACETYLSALICYLIC ACID [Concomitant]
     Dosage: TAKES ONE DAILY

REACTIONS (5)
  - ANXIETY [None]
  - SLEEP DISORDER [None]
  - DECREASED APPETITE [None]
  - PHOBIA [None]
  - IRRITABILITY [None]
